FAERS Safety Report 18287529 (Version 1)
Quarter: 2020Q3

REPORT INFORMATION
  Report Type: Spontaneous
  Country: US (occurrence: US)
  Receive Date: 20200918
  Receipt Date: 20200918
  Transmission Date: 20201103
  Serious: Yes (Other)
  Sender: FDA-Public Use
  Company Number: None

PATIENT
  Age: 58 Year
  Sex: Male
  Weight: 112.94 kg

DRUGS (2)
  1. LINEZOLID 600MG [Suspect]
     Active Substance: LINEZOLID
     Indication: OSTEOMYELITIS
     Route: 042
     Dates: start: 20200626, end: 20200721
  2. MEROPENEM 1GM IV [Suspect]
     Active Substance: MEROPENEM
     Indication: OSTEOMYELITIS
     Route: 042
     Dates: start: 20200626

REACTIONS (1)
  - Thrombocytopenia [None]

NARRATIVE: CASE EVENT DATE: 20200721
